FAERS Safety Report 6994133-3 (Version None)
Quarter: 2010Q3

REPORT INFORMATION
  Report Type: 
  Country: None (occurrence: None)
  Receive Date: 20100917
  Receipt Date: 20100714
  Transmission Date: 20110219
  Serious: No
  Sender: FDA-Public Use
  Company Number: US-ASTRAZENECA-2010SE32899

PATIENT
  Age: 66 Year
  Sex: Female
  Weight: 64.4 kg

DRUGS (2)
  1. SEROQUEL [Suspect]
     Indication: HALLUCINATION
     Route: 048
     Dates: start: 20100501, end: 20100701
  2. SEROQUEL [Suspect]
     Route: 048
     Dates: start: 20100707

REACTIONS (7)
  - CRYING [None]
  - DRUG DOSE OMISSION [None]
  - DYSPHEMIA [None]
  - FEELING ABNORMAL [None]
  - FEELING JITTERY [None]
  - INSOMNIA [None]
  - TEARFULNESS [None]
